FAERS Safety Report 7269756-7 (Version None)
Quarter: 2011Q1

REPORT INFORMATION
  Report Type: 
  Country: None (occurrence: None)
  Receive Date: 20110202
  Receipt Date: 20110126
  Transmission Date: 20110831
  Serious: Yes (Other)
  Sender: FDA-Public Use
  Company Number: BR-PFIZER INC-2011019248

PATIENT
  Sex: Female

DRUGS (1)
  1. CELEBRA [Suspect]
     Indication: FIBROMYALGIA
     Dosage: 200 MG, UNK
     Route: 048

REACTIONS (2)
  - RENAL PAIN [None]
  - ABDOMINAL PAIN [None]
